FAERS Safety Report 10046480 (Version 1)
Quarter: 2014Q1

REPORT INFORMATION
  Report Type: Spontaneous
  Country: US (occurrence: US)
  Receive Date: 20140331
  Receipt Date: 20140331
  Transmission Date: 20141002
  Serious: No
  Sender: FDA-Public Use
  Company Number: US-BIOGENIDEC-2014BI027840

PATIENT
  Age: 43 Year
  Sex: Female

DRUGS (12)
  1. TECFIDERA [Suspect]
     Indication: MULTIPLE SCLEROSIS
     Route: 048
     Dates: start: 20140305
  2. DIOVAN [Concomitant]
  3. FENOFIBRATE [Concomitant]
  4. FLUOXETINE HCL [Concomitant]
  5. KLOR-CON [Concomitant]
  6. LISINOPRIL [Concomitant]
  7. NIASPAN [Concomitant]
  8. PANTOPRAZOLE SODIUM [Concomitant]
  9. POTASSIUM [Concomitant]
  10. TOPIRAMATE [Concomitant]
  11. VERAPAMIL HCL ER [Concomitant]
  12. ZOLPIDEM TARTRATE [Concomitant]

REACTIONS (1)
  - Fatigue [Recovered/Resolved]
